FAERS Safety Report 6486271-9 (Version None)
Quarter: 2009Q4

REPORT INFORMATION
  Report Type: 
  Country: None (occurrence: None)
  Receive Date: 20091209
  Receipt Date: 20090728
  Transmission Date: 20100525
  Serious: No
  Sender: FDA-Public Use
  Company Number: US-AMGEN-KDL357712

PATIENT
  Sex: Female

DRUGS (2)
  1. ENBREL [Suspect]
     Indication: RHEUMATOID ARTHRITIS
     Route: 058
     Dates: start: 20090303
  2. LEFLUNOMIDE [Concomitant]
     Route: 048

REACTIONS (4)
  - COUGH [None]
  - DIARRHOEA [None]
  - INJECTION SITE PAIN [None]
  - KIDNEY INFECTION [None]
